FAERS Safety Report 23755426 (Version 1)
Quarter: 2024Q2

REPORT INFORMATION
  Report Type: Spontaneous
  Country: PY (occurrence: PY)
  Receive Date: 20240418
  Receipt Date: 20240418
  Transmission Date: 20240716
  Serious: Yes (Death)
  Sender: FDA-Public Use
  Company Number: PY-002147023-NVSC2024PY081628

PATIENT
  Sex: Male

DRUGS (1)
  1. GLIVEC [Suspect]
     Active Substance: IMATINIB MESYLATE
     Indication: Myeloid leukaemia
     Dosage: 400 MG, Q24H (EVERY 24 HOURS)
     Route: 048

REACTIONS (1)
  - Dengue fever [Fatal]
